FAERS Safety Report 4830463-9 (Version None)
Quarter: 2005Q4

REPORT INFORMATION
  Report Type: 
  Country: None (occurrence: None)
  Receive Date: 20051117
  Receipt Date: 20030310
  Transmission Date: 20060501
  Serious: Yes (Other)
  Sender: FDA-Public Use
  Company Number: US-ROCHE-333518

PATIENT
  Age: 52 Year
  Sex: Male
  Weight: 63.5 kg

DRUGS (4)
  1. PEGASYS [Suspect]
     Indication: HEPATITIS C
     Route: 058
     Dates: start: 20021102, end: 20030121
  2. PEGASYS [Suspect]
     Dosage: THE DOSAGE FOR PEGASYS WAS REDUCED TO 90 MCG AT AN UNKOWN DATE.
     Route: 058
  3. REBETOL [Concomitant]
     Indication: HEPATITIS C
     Dosage: 400MG IN MORNING AND 600MG AT NIGHT.  STOPPED ON 15 DEC 2002, AND RESTARTED 2 WEEKS LATER (29 DEC 2+
     Route: 048
     Dates: start: 20021117, end: 20030217
  4. TYLENOL W/ CODEINE NO. 3 [Concomitant]
     Indication: PAIN
     Route: 048

REACTIONS (9)
  - BONE MARROW FAILURE [None]
  - DEPRESSION [None]
  - HALLUCINATION [None]
  - HOMICIDAL IDEATION [None]
  - INSOMNIA [None]
  - PLATELET COUNT DECREASED [None]
  - SUICIDAL IDEATION [None]
  - THERAPY NON-RESPONDER [None]
  - WHITE BLOOD CELL COUNT DECREASED [None]
